FAERS Safety Report 17374014 (Version 1)
Quarter: 2020Q1

REPORT INFORMATION
  Report Type: Spontaneous
  Country: US (occurrence: US)
  Receive Date: 20200204
  Receipt Date: 20200204
  Transmission Date: 20200409
  Serious: Yes (Disabling)
  Sender: FDA-Public Use
  Company Number: None

PATIENT
  Age: 54 Year
  Sex: Female
  Weight: 56.25 kg

DRUGS (7)
  1. ZANTAC [Suspect]
     Active Substance: RANITIDINE HYDROCHLORIDE
     Indication: GASTROOESOPHAGEAL REFLUX DISEASE
     Dosage: ?          QUANTITY:1 TABLET(S);?
     Route: 048
  2. ENALAPRIL 20MG [Concomitant]
     Active Substance: ENALAPRIL
  3. VITAMIN D3 2000 UNITS [Concomitant]
  4. HYDROCLORIDAZIDE 12.5MG [Concomitant]
  5. MAGNESIUM 250MG [Concomitant]
  6. CENTRUM LIQUID MULTIVITAMIN [Concomitant]
  7. METOPOLOL 25MG [Concomitant]

REACTIONS (39)
  - Morbid thoughts [None]
  - Ear pain [None]
  - Somnolence [None]
  - Blood triglycerides increased [None]
  - Gastric disorder [None]
  - Depression [None]
  - Diabetes mellitus [None]
  - Dyspepsia [None]
  - Vitreous floaters [None]
  - Agitation [None]
  - Pruritus [None]
  - Vomiting [None]
  - Visual impairment [None]
  - Dizziness [None]
  - Nausea [None]
  - Dyspnoea [None]
  - Confusional state [None]
  - Hypertension [None]
  - General physical health deterioration [None]
  - Chest pain [None]
  - Diarrhoea [None]
  - Vision blurred [None]
  - Insomnia [None]
  - Arrhythmia [None]
  - Headache [None]
  - Chills [None]
  - Pyrexia [None]
  - Swelling [None]
  - Flatulence [None]
  - Palpitations [None]
  - Rash [None]
  - Abdominal pain upper [None]
  - Bone pain [None]
  - Cough [None]
  - Oropharyngeal pain [None]
  - Tinnitus [None]
  - Eye pain [None]
  - Mood swings [None]
  - Blood pressure inadequately controlled [None]

NARRATIVE: CASE EVENT DATE: 20140206
